FAERS Safety Report 7866101-0 (Version None)
Quarter: 2011Q4

REPORT INFORMATION
  Report Type: 
  Country: None (occurrence: None)
  Receive Date: 20111028
  Receipt Date: 20110422
  Transmission Date: 20120403
  Serious: No
  Sender: FDA-Public Use
  Company Number: US-GLAXOSMITHKLINE-A0924234A

PATIENT
  Age: 62 Year
  Sex: Female

DRUGS (7)
  1. ADVAIR DISKUS 100/50 [Suspect]
     Indication: BRONCHITIS
     Dosage: 1PUFF TWICE PER DAY
     Route: 055
     Dates: start: 20110412
  2. LEVAQUIN [Concomitant]
  3. SYNTHROID [Concomitant]
  4. MUSCLE RELAXANT [Concomitant]
  5. MOBIC [Concomitant]
  6. ACYCLOVIR [Concomitant]
  7. UNSPECIFIED MEDICATION [Concomitant]
     Route: 065

REACTIONS (10)
  - NAUSEA [None]
  - LIP DRY [None]
  - VOCAL CORD INFLAMMATION [None]
  - OROPHARYNGEAL PAIN [None]
  - DYSPEPSIA [None]
  - DRY MOUTH [None]
  - ORAL DISORDER [None]
  - PHARYNGEAL DISORDER [None]
  - CANDIDIASIS [None]
  - PYREXIA [None]
